FAERS Safety Report 19646307 (Version 1)
Quarter: 2021Q3

REPORT INFORMATION
  Report Type: Spontaneous
  Country: ES (occurrence: ES)
  Receive Date: 20210802
  Receipt Date: 20210802
  Transmission Date: 20211014
  Serious: Yes (Other)
  Sender: FDA-Public Use
  Company Number: ES-OTSUKA-2021_026197

PATIENT
  Age: 49 Year
  Sex: Female

DRUGS (2)
  1. JINARC [Suspect]
     Active Substance: TOLVAPTAN
     Dosage: 90 MG, QD
     Route: 048
     Dates: start: 20210614, end: 20210618
  2. JINARC [Suspect]
     Active Substance: TOLVAPTAN
     Indication: CONGENITAL CYSTIC KIDNEY DISEASE
     Dosage: 75 MG, QD
     Route: 048
     Dates: start: 20210517, end: 20210613

REACTIONS (3)
  - Incorrect dose administered [Unknown]
  - Hypotension [Recovered/Resolved]
  - Syncope [Recovered/Resolved]

NARRATIVE: CASE EVENT DATE: 20210517
